FAERS Safety Report 11804021 (Version 1)
Quarter: 2015Q4

REPORT INFORMATION
  Report Type: Spontaneous
  Country: IT (occurrence: IT)
  Receive Date: 20151204
  Receipt Date: 20151204
  Transmission Date: 20160305
  Serious: Yes (Other)
  Sender: FDA-Public Use
  Company Number: IT-SA-2015SA193988

PATIENT
  Age: 72 Year
  Sex: Male

DRUGS (4)
  1. LEVOXACIN [Suspect]
     Active Substance: LEVOFLOXACIN
     Route: 048
  2. PANTORC [Suspect]
     Active Substance: PANTOPRAZOLE SODIUM
     Route: 042
     Dates: start: 20151109
  3. DECADRON [Suspect]
     Active Substance: DEXAMETHASONE
     Route: 042
  4. CLEXANE [Suspect]
     Active Substance: ENOXAPARIN SODIUM
     Route: 058
     Dates: start: 20151109

REACTIONS (2)
  - Hyperbilirubinaemia [Recovering/Resolving]
  - Respiratory failure [Recovering/Resolving]

NARRATIVE: CASE EVENT DATE: 20151109
